FAERS Safety Report 5699541-9 (Version None)
Quarter: 2008Q2

REPORT INFORMATION
  Report Type: 
  Country: None (occurrence: None)
  Receive Date: 20080410
  Receipt Date: 20080328
  Transmission Date: 20081010
  Serious: Yes (Hospitalization)
  Sender: FDA-Public Use
  Company Number: US-ABBOTT-08P-163-0438686-00

PATIENT
  Sex: Female
  Weight: 54.48 kg

DRUGS (9)
  1. NIASPAN [Suspect]
     Indication: BLOOD CHOLESTEROL INCREASED
     Route: 048
  2. NIASPAN [Suspect]
     Dates: start: 20071219
  3. NIASPAN [Suspect]
     Route: 048
  4. ACETYLSALICYLIC ACID SRT [Concomitant]
     Indication: PREMEDICATION
  5. RALOXIFENE HYDROCHLORIDE [Concomitant]
     Indication: OSTEOPOROSIS
     Route: 048
  6. RALOXIFENE HYDROCHLORIDE [Concomitant]
     Indication: PROPHYLAXIS
  7. GLUCOSAMINE CONGENTIN WITH MSN [Concomitant]
     Indication: MUSCLE SPASMS
  8. FISH OIL [Concomitant]
     Indication: BLOOD CHOLESTEROL INCREASED
     Route: 048
  9. CALCIUM CARBONATE [Concomitant]
     Indication: MINERAL SUPPLEMENTATION
     Route: 048

REACTIONS (3)
  - BLOOD PRESSURE INCREASED [None]
  - BURNING SENSATION [None]
  - PRURITUS [None]
